FAERS Safety Report 8290617-9 (Version None)
Quarter: 2012Q2

REPORT INFORMATION
  Report Type: 
  Country: None (occurrence: None)
  Receive Date: 20120417
  Receipt Date: 20120224
  Transmission Date: 20120825
  Serious: No
  Sender: FDA-Public Use
  Company Number: US-ASTRAZENECA-2012SE01670

PATIENT
  Age: 45 Year
  Sex: Male
  Weight: 97.5 kg

DRUGS (6)
  1. ATENOLOL [Concomitant]
  2. DIGOXIN [Concomitant]
     Indication: CARDIAC DISORDER
  3. CITALOPRAM [Concomitant]
  4. NEXIUM [Suspect]
     Indication: GASTROOESOPHAGEAL REFLUX DISEASE
     Route: 048
  5. GEMFIBROZIL [Concomitant]
  6. ASPIRIN [Concomitant]
     Indication: CARDIAC DISORDER

REACTIONS (3)
  - ULCER [None]
  - DRUG DOSE OMISSION [None]
  - PAIN [None]
